FAERS Safety Report 6489799-0 (Version None)
Quarter: 2009Q4

REPORT INFORMATION
  Report Type: 
  Country: None (occurrence: None)
  Receive Date: 20091211
  Receipt Date: 20091204
  Transmission Date: 20100525
  Serious: Yes (Hospitalization)
  Sender: FDA-Public Use
  Company Number: US-BIOGENIDEC-2007BI003243

PATIENT
  Age: 65 Year
  Sex: Male

DRUGS (5)
  1. AVONEX [Suspect]
     Indication: MULTIPLE SCLEROSIS
     Route: 030
     Dates: start: 19960601, end: 20040801
  2. AVONEX [Suspect]
     Route: 030
     Dates: start: 20040801, end: 20060220
  3. AVONEX [Suspect]
     Route: 030
     Dates: start: 20060720, end: 20070430
  4. AVONEX [Suspect]
     Route: 030
     Dates: start: 20070730, end: 20070903
  5. AVONEX [Suspect]
     Route: 030
     Dates: start: 20080122, end: 20081101

REACTIONS (7)
  - CYSTITIS [None]
  - DECUBITUS ULCER [None]
  - FALL [None]
  - FURUNCLE [None]
  - HIP FRACTURE [None]
  - INFECTED SKIN ULCER [None]
  - JOINT INJURY [None]
